FAERS Safety Report 16791184 (Version 1)
Quarter: 2019Q4

REPORT INFORMATION
  Report Type: Spontaneous
  Country: JM (occurrence: US)
  Receive Date: 20190909
  Receipt Date: 20190909
  Transmission Date: 20200122
  Serious: Yes (Other)
  Sender: FDA-Public Use
  Company Number: None

PATIENT
  Age: 33 Year
  Sex: Female
  Weight: 68.04 kg

DRUGS (3)
  1. PANADOL [Concomitant]
     Active Substance: ACETAMINOPHEN
  2. FISH OIL (CENTRUM) [Concomitant]
  3. MIRENA [Suspect]
     Active Substance: LEVONORGESTREL
     Indication: CONTRACEPTION

REACTIONS (15)
  - Galactorrhoea [None]
  - Vulvovaginal dryness [None]
  - Metrorrhagia [None]
  - Vaginal haemorrhage [None]
  - Muscle spasms [None]
  - Depression [None]
  - Coital bleeding [None]
  - Acne [None]
  - Vulvovaginal pruritus [None]
  - Libido decreased [None]
  - Blood prolactin increased [None]
  - Uterine polyp [None]
  - Device dislocation [None]
  - Weight increased [None]
  - Vaginal discharge [None]

NARRATIVE: CASE EVENT DATE: 20181212
